FAERS Safety Report 8248274-3 (Version None)
Quarter: 2012Q1

REPORT INFORMATION
  Report Type: 
  Country: None (occurrence: None)
  Receive Date: 20120330
  Receipt Date: 20120326
  Transmission Date: 20120608
  Serious: Yes (Other)
  Sender: FDA-Public Use
  Company Number: CN-BRISTOL-MYERS SQUIBB COMPANY-16450728

PATIENT
  Age: 38 Year
  Sex: Female

DRUGS (1)
  1. MYCOSTATIN [Suspect]
     Dosage: 1DF:TEN TIMES

REACTIONS (2)
  - PREGNANCY [None]
  - ABORTION INDUCED [None]
